FAERS Safety Report 8306393-7 (Version None)
Quarter: 2012Q2

REPORT INFORMATION
  Report Type: 
  Country: None (occurrence: None)
  Receive Date: 20120423
  Receipt Date: 20120409
  Transmission Date: 20120825
  Serious: Yes (Death, Other)
  Sender: FDA-Public Use
  Company Number: US-MYLANLABS-2009AC000014

PATIENT
  Age: 65 Year
  Sex: Female
  Weight: 68.04 kg

DRUGS (10)
  1. COUMADIN [Concomitant]
  2. ABILIFY [Concomitant]
  3. DIGOXIN [Suspect]
     Route: 048
     Dates: start: 20071203, end: 20080328
  4. GLUCOTROL [Concomitant]
  5. AMBIEN [Concomitant]
  6. LASIX [Concomitant]
  7. NORVASC [Concomitant]
  8. COREG [Concomitant]
  9. PROTONIX [Concomitant]
  10. LISINOPRIL [Concomitant]

REACTIONS (5)
  - INJURY [None]
  - ILL-DEFINED DISORDER [None]
  - DEATH [None]
  - ECONOMIC PROBLEM [None]
  - CEREBROVASCULAR ACCIDENT [None]
